FAERS Safety Report 9552336 (Version 1)
Quarter: 2013Q3

REPORT INFORMATION
  Report Type: Spontaneous
  Country: US (occurrence: None)
  Receive Date: 20130923
  Receipt Date: 20130923
  Transmission Date: 20140515
  Serious: Yes (Hospitalization)
  Sender: FDA-Public Use
  Company Number: JPI-P-033454

PATIENT
  Age: 31 Year
  Sex: Female
  Weight: 49.1 kg

DRUGS (6)
  1. XYREM [Suspect]
     Route: 048
     Dates: start: 20130626, end: 201307
  2. PROVIGIL [Suspect]
  3. WELLBUTRIN (BUPROPION HCL) (BUPROPION HYDROCHLORIDE) [Concomitant]
  4. SINGULAIR [Concomitant]
  5. ADVAIR (FLUTICASONE PROPIONATE) (FLUTICASONE PROPIONATE) [Concomitant]
  6. INHALERS (ANTI-ASTHMATICS) [Concomitant]

REACTIONS (7)
  - Muscle twitching [None]
  - Muscle spasms [None]
  - Poor quality sleep [None]
  - Hunger [None]
  - Gait disturbance [None]
  - Headache [None]
  - Feeling drunk [None]
